FAERS Safety Report 21988651 (Version 1)
Quarter: 2023Q1

REPORT INFORMATION
  Report Type: Spontaneous
  Country: MA (occurrence: MA)
  Receive Date: 20230214
  Receipt Date: 20230214
  Transmission Date: 20230418
  Serious: Yes (Hospitalization, Other)
  Sender: FDA-Public Use
  Company Number: None

PATIENT
  Age: 86 Year
  Sex: Male

DRUGS (6)
  1. LINEZOLID [Suspect]
     Active Substance: LINEZOLID
     Indication: Septic shock
     Dosage: UNK 600 MG, EVERY 12 HOUR
     Route: 065
  2. LINEZOLID [Suspect]
     Active Substance: LINEZOLID
     Indication: Dementia
  3. LINEZOLID [Suspect]
     Active Substance: LINEZOLID
     Indication: Sepsis
  4. MEROPENEM [Suspect]
     Active Substance: MEROPENEM
     Indication: Sepsis
     Dosage: UNK 3 G, EVERY 24 HOUR
     Route: 065
  5. MEROPENEM [Suspect]
     Active Substance: MEROPENEM
     Indication: Dementia
  6. MEROPENEM [Suspect]
     Active Substance: MEROPENEM
     Indication: Septic shock

REACTIONS (1)
  - Lactic acidosis [Recovered/Resolved]
